FAERS Safety Report 24584000 (Version 1)
Quarter: 2024Q4

REPORT INFORMATION
  Report Type: Report from Study
  Country: CN (occurrence: CN)
  Receive Date: 20241106
  Receipt Date: 20241106
  Transmission Date: 20250115
  Serious: Yes (Other)
  Sender: PFIZER
  Company Number: CN-PFIZER INC-PV202400141591

PATIENT
  Sex: Female

DRUGS (7)
  1. DOXORUBICIN HYDROCHLORIDE [Suspect]
     Active Substance: DOXORUBICIN HYDROCHLORIDE
     Indication: Hepatoblastoma
     Dosage: UNK, CYCLIC (4 CYCLES)
  2. CISPLATIN [Suspect]
     Active Substance: CISPLATIN
     Indication: Hepatoblastoma
     Dosage: UNK, CYCLIC (4 CYCLES)
  3. FLUOROURACIL SODIUM [Suspect]
     Active Substance: FLUOROURACIL SODIUM
     Indication: Hepatoblastoma
     Dosage: UNK, CYCLIC (4 CYCLES)
  4. VINCRISTINE [Suspect]
     Active Substance: VINCRISTINE
     Indication: Hepatoblastoma
     Dosage: UNK, CYCLIC (4 CYCLES)
  5. IFOSFAMIDE [Suspect]
     Active Substance: IFOSFAMIDE
     Indication: Hepatoblastoma
     Dosage: UNK, CYCLIC (4 CYCLES)
  6. CARBOPLATIN [Suspect]
     Active Substance: CARBOPLATIN
     Indication: Hepatoblastoma
     Dosage: UNK, CYCLIC (4 CYCLES)
  7. ETOPOSIDE [Suspect]
     Active Substance: ETOPOSIDE
     Indication: Hepatoblastoma
     Dosage: UNK, CYCLIC (4 CYCLES)

REACTIONS (1)
  - Renal impairment [Unknown]
